FAERS Safety Report 8759759 (Version 1)
Quarter: 2012Q4

REPORT INFORMATION
  Report Type: 
  Country: CN (occurrence: CN)
  Receive Date: 20120829
  Receipt Date: 20120829
  Transmission Date: 20130627
  Serious: Yes (Other)
  Sender: FDA-Public Use
  Company Number: CN-ROCHE-1105162

PATIENT
  Age: 46 Year
  Sex: Male
  Weight: 60 kg

DRUGS (3)
  1. ROCEPHIN [Suspect]
     Indication: LUNG INFECTION
     Route: 041
     Dates: start: 20091215, end: 20091222
  2. GLUTATHIONE FORTE [Concomitant]
     Indication: PRODUCT USED FOR UNKNOWN INDICATION
     Route: 004
     Dates: start: 20091215, end: 20100105
  3. PANTOPRAZOLE SODIUM [Concomitant]
     Indication: PRODUCT USED FOR UNKNOWN INDICATION
     Route: 041
     Dates: start: 20091215, end: 20100106

REACTIONS (1)
  - Coagulopathy [Recovering/Resolving]
